FAERS Safety Report 9647912 (Version 1)
Quarter: 2013Q4

REPORT INFORMATION
  Report Type: Spontaneous
  Country: US (occurrence: US)
  Receive Date: 20131028
  Receipt Date: 20131028
  Transmission Date: 20140711
  Serious: Yes (Hospitalization)
  Sender: FDA-Public Use
  Company Number: US-JNJFOC-20131012837

PATIENT
  Sex: Male

DRUGS (1)
  1. LEVOFLOXACIN [Suspect]
     Indication: LUNG INFECTION
     Route: 048

REACTIONS (5)
  - Blood creatinine increased [Unknown]
  - Lung transplant [Unknown]
  - Tendon rupture [Unknown]
  - Adverse event [Unknown]
  - Pain in extremity [Unknown]
